FAERS Safety Report 10529011 (Version 1)
Quarter: 2014Q4

REPORT INFORMATION
  Report Type: Spontaneous
  Country: US (occurrence: None)
  Receive Date: 20141016
  Receipt Date: 20141016
  Transmission Date: 20150528
  Serious: No
  Sender: FDA-Public Use
  Company Number: None

PATIENT
  Age: 65 Year
  Sex: Female
  Weight: 56.4 kg

DRUGS (14)
  1. DEXAMETHASONE (DECADRON) [Concomitant]
  2. BECLOMETHASONE DIPROPIONATE (QVAR) [Concomitant]
  3. ALBUTEROL (PROAIR HFA) [Concomitant]
  4. MAGNESIUM CHLORIDE. [Concomitant]
     Active Substance: MAGNESIUM CHLORIDE
  5. LORAZEPAM (ATIVAN) [Concomitant]
  6. LISINOPRIL-HYDROCHLOROTHIAZIDE (PRINZIDE/ZESTORETIC) [Concomitant]
  7. AMLODIPINE (NORVASC) [Concomitant]
  8. POMALYST [Suspect]
     Active Substance: POMALIDOMIDE
     Indication: PLASMA CELL MYELOMA
     Dosage: 4MG X21/28D CYCLE
     Route: 048
     Dates: start: 201409
  9. FLUNISOLIDE (NASALIDE) [Concomitant]
  10. ASPIRIN (ADULT LOW DOSE ASPIRIN) [Concomitant]
  11. MOMETASONE-FORMOTEROL (DULERA) [Concomitant]
  12. ACYCLOVIR (ZOVIRAX) [Concomitant]
  13. POTASSIUM CHLORIDE. [Concomitant]
     Active Substance: POTASSIUM CHLORIDE
  14. ALBUTEROL (PROVENTIL/VENTOLIN) [Concomitant]

REACTIONS (3)
  - Contusion [None]
  - Neutropenia [None]
  - Platelet count decreased [None]

NARRATIVE: CASE EVENT DATE: 20141010
